FAERS Safety Report 7288455-9 (Version None)
Quarter: 2011Q1

REPORT INFORMATION
  Report Type: 
  Country: None (occurrence: None)
  Receive Date: 20110211
  Receipt Date: 20110201
  Transmission Date: 20110831
  Serious: Yes (Other)
  Sender: FDA-Public Use
  Company Number: B0688260A

PATIENT
  Sex: Female
  Weight: 51 kg

DRUGS (5)
  1. M.V.I. [Concomitant]
     Dosage: 1IUAX PER DAY
     Route: 042
     Dates: start: 20100728, end: 20100816
  2. ZANTAC [Suspect]
     Indication: ABDOMINAL PAIN UPPER
     Dosage: 100MG PER DAY
     Dates: start: 20100726, end: 20100811
  3. P N TWIN [Concomitant]
     Dosage: 1IUAX PER DAY
     Route: 042
     Dates: start: 20100728, end: 20100816
  4. ENEMA [Concomitant]
  5. RADEN [Concomitant]
     Dates: start: 20100812

REACTIONS (6)
  - ASPARTATE AMINOTRANSFERASE INCREASED [None]
  - URINARY TRACT INFECTION [None]
  - PYREXIA [None]
  - ALANINE AMINOTRANSFERASE INCREASED [None]
  - BLOOD LACTATE DEHYDROGENASE INCREASED [None]
  - LIVER DISORDER [None]
